FAERS Safety Report 9800086 (Version 1)
Quarter: 2014Q1

REPORT INFORMATION
  Report Type: Spontaneous
  Country: US (occurrence: US)
  Receive Date: 20140106
  Receipt Date: 20140106
  Transmission Date: 20141002
  Serious: No
  Sender: FDA-Public Use
  Company Number: US-GILEAD-2010-0032456

PATIENT
  Age: 47 Year
  Sex: Male
  Weight: 83.91 kg

DRUGS (7)
  1. LETAIRIS [Suspect]
     Indication: PULMONARY ARTERIAL HYPERTENSION
     Route: 048
     Dates: start: 20100616
  2. REVATIO [Concomitant]
  3. CARVEDILOL [Concomitant]
  4. LOSARTAN POT [Concomitant]
  5. NEXIUM [Concomitant]
  6. METHOTREXATE [Concomitant]
  7. MULTIVITAMIN [Concomitant]

REACTIONS (1)
  - Liver function test abnormal [Unknown]
